FAERS Safety Report 21754612 (Version 1)
Quarter: 2022Q4

REPORT INFORMATION
  Report Type: Report from Study
  Country: US (occurrence: US)
  Receive Date: 20221220
  Receipt Date: 20221220
  Transmission Date: 20230113
  Serious: Yes (Death, Other)
  Sender: FDA-Public Use
  Company Number: US-GILEAD-2022-0610076

PATIENT
  Age: 58 Year
  Sex: Male

DRUGS (1)
  1. EMTRICITABINE\TENOFOVIR DISOPROXIL FUMARATE [Suspect]
     Active Substance: EMTRICITABINE\TENOFOVIR DISOPROXIL FUMARATE
     Indication: Prophylaxis against HIV infection
     Dosage: 500MG, ORAL, ONCE DAILY
     Route: 065
     Dates: end: 20221005

REACTIONS (1)
  - Death [Fatal]

NARRATIVE: CASE EVENT DATE: 20221005
